FAERS Safety Report 19722412 (Version 2)
Quarter: 2021Q3

REPORT INFORMATION
  Report Type: Report from Study
  Country: None (occurrence: JP)
  Receive Date: 20210819
  Receipt Date: 20210820
  Transmission Date: 20211014
  Serious: Yes (Death)
  Sender: FDA-Public Use
  Company Number: JP-ABBVIE-21K-087-4045870-00

PATIENT
  Age: 79 Year
  Sex: Female
  Weight: 49.2 kg

DRUGS (8)
  1. VENCLEXTA [Suspect]
     Active Substance: VENETOCLAX
     Route: 048
     Dates: start: 20210415, end: 20210415
  2. SOLDEM 6 [Concomitant]
     Indication: PROPHYLAXIS
     Route: 050
     Dates: end: 20210420
  3. FUROSEMIDE. [Concomitant]
     Active Substance: FUROSEMIDE
     Indication: PROPHYLAXIS
     Route: 050
     Dates: end: 20210420
  4. VENCLEXTA [Suspect]
     Active Substance: VENETOCLAX
     Indication: ACUTE MYELOID LEUKAEMIA
     Route: 048
     Dates: start: 20210414, end: 20210414
  5. VENCLEXTA [Suspect]
     Active Substance: VENETOCLAX
     Route: 048
     Dates: start: 20210416
  6. SODIUM BICARBONATE ATLANTIC [Concomitant]
     Indication: PROPHYLAXIS
     Route: 050
     Dates: end: 20210420
  7. FEBUXOSTAT AB [Concomitant]
     Indication: PROPHYLAXIS
     Route: 048
     Dates: end: 20210420
  8. VIDAZA [Suspect]
     Active Substance: AZACITIDINE
     Indication: ACUTE MYELOID LEUKAEMIA
     Route: 050
     Dates: start: 20210414, end: 20210420

REACTIONS (2)
  - Neutropenia [Not Recovered/Not Resolved]
  - Cerebellar haemorrhage [Fatal]

NARRATIVE: CASE EVENT DATE: 20210427
